FAERS Safety Report 19098132 (Version 13)
Quarter: 2021Q3

REPORT INFORMATION
  Report Type: Report from Study
  Country: GB (occurrence: GB)
  Receive Date: 20210406
  Receipt Date: 20210930
  Transmission Date: 20211014
  Serious: Yes (Hospitalization, Other)
  Sender: FDA-Public Use
  Company Number: GB-ACCORD-215040

PATIENT
  Age: 51 Year
  Sex: Female

DRUGS (30)
  1. ERIBULIN [Suspect]
     Active Substance: ERIBULIN
     Indication: HER2 POSITIVE BREAST CANCER
     Dosage: 2.5 MG
     Route: 042
     Dates: start: 20180822, end: 20181010
  2. PERTUZUMAB. [Suspect]
     Active Substance: PERTUZUMAB
     Indication: HER2 POSITIVE BREAST CANCER
     Dosage: 420 MG, Q3W
     Route: 042
     Dates: start: 20170324, end: 20170324
  3. ONDANSETRON [Concomitant]
     Active Substance: ONDANSETRON
  4. RANITIDINE. [Concomitant]
     Active Substance: RANITIDINE
  5. SENNOSIDE B [Concomitant]
     Active Substance: SENNOSIDE B
  6. CAPECITABINE. [Suspect]
     Active Substance: CAPECITABINE
     Indication: HER2 POSITIVE BREAST CANCER
     Dosage: MANUFACTURER UNKNOWN
     Route: 048
     Dates: start: 20170905, end: 20171219
  7. ATEZOLIZUMAB. [Suspect]
     Active Substance: ATEZOLIZUMAB
     Indication: HER2 POSITIVE BREAST CANCER
     Dosage: 1200 MG, Q3W (TARGETED THERAPY)
     Route: 042
     Dates: start: 20170510, end: 20170628
  8. AMOXICILLIN. [Concomitant]
     Active Substance: AMOXICILLIN
     Indication: UPPER RESPIRATORY TRACT INFECTION
     Dosage: 1500 MG, 500 MG, TID (3/DAY) (0.33 DAY)
     Route: 048
     Dates: start: 20160330
  9. CITALOPRAM [Concomitant]
     Active Substance: CITALOPRAM HYDROBROMIDE
     Indication: PRODUCT USED FOR UNKNOWN INDICATION
     Dosage: 20 MG, QD
     Route: 048
  10. HUMALOG [Concomitant]
     Active Substance: INSULIN LISPRO
     Indication: PRODUCT USED FOR UNKNOWN INDICATION
     Dosage: 3 OT, QD (16 UNIT)
     Route: 058
  11. BUDESONIDE. [Concomitant]
     Active Substance: BUDESONIDE
     Dates: start: 20180220
  12. DOCUSATE [Concomitant]
     Active Substance: DOCUSATE
  13. LACTULOSE. [Concomitant]
     Active Substance: LACTULOSE
  14. LEVEMIR [Concomitant]
     Active Substance: INSULIN DETEMIR
     Indication: PRODUCT USED FOR UNKNOWN INDICATION
     Dosage: 1 UNK, QD (38 UNIT)
     Route: 058
  15. CARBOPLATIN. [Suspect]
     Active Substance: CARBOPLATIN
     Indication: HER2 POSITIVE BREAST CANCER
     Dosage: 240 MILLIGRAM, QW (DOSE FORM: 120)
     Route: 042
     Dates: start: 20181219, end: 20190117
  16. DOCETAXEL. [Suspect]
     Active Substance: DOCETAXEL
     Indication: HER2 POSITIVE BREAST CANCER
     Dosage: 132 MILLIGRAM, Q3W (DOSE FORM:120)
     Route: 042
     Dates: start: 20150925, end: 20151016
  17. NERATINIB [Suspect]
     Active Substance: NERATINIB
     Indication: HER2 POSITIVE BREAST CANCER
     Dosage: 240 MILLIGRAM, QD
     Route: 048
     Dates: start: 20180220, end: 20180717
  18. METFORMIN [Concomitant]
     Active Substance: METFORMIN HYDROCHLORIDE
     Indication: PRODUCT USED FOR UNKNOWN INDICATION
     Dosage: 1000 MG, QD
     Route: 048
  19. HALOPERIDOL. [Concomitant]
     Active Substance: HALOPERIDOL
  20. HYOSCINE [Concomitant]
     Active Substance: SCOPOLAMINE
     Dosage: ALSO FROM 19?DEC?2017 TO 2018
     Dates: start: 20171219
  21. MACROGOL/MACROGOL STEARATE [Concomitant]
     Active Substance: POLYETHYLENE GLYCOLS
  22. TRASTUZUMAB/EMTANSINE [Suspect]
     Active Substance: ADO-TRASTUZUMAB EMTANSINE
     Indication: HER2 POSITIVE BREAST CANCER
     Dosage: Q3W
     Route: 042
     Dates: start: 20150924, end: 20150924
  23. LANSOPRAZOLE. [Concomitant]
     Active Substance: LANSOPRAZOLE
     Indication: PRODUCT USED FOR UNKNOWN INDICATION
     Dosage: 30 MG, QD
     Route: 048
  24. ZOPICLONE [Concomitant]
     Active Substance: ZOPICLONE
     Indication: INSOMNIA
     Dosage: 3.75 MG, QD
     Route: 048
     Dates: start: 20170812, end: 20170822
  25. AMITRIPTYLINE [Concomitant]
     Active Substance: AMITRIPTYLINE
     Indication: NEUROPATHY PERIPHERAL
     Dosage: 30 MG, QD,10 MG, TID (3/DAY) (0.33 DAY)/30 MG
     Route: 048
     Dates: start: 201608
  26. GLYCEROL [Concomitant]
     Active Substance: GLYCERIN
     Route: 048
     Dates: start: 20180511, end: 201805
  27. TRASTUZUMAB. [Suspect]
     Active Substance: TRASTUZUMAB
     Indication: HER2 POSITIVE BREAST CANCER
     Dosage: 600 MILLIGRAM, QD
     Route: 042
     Dates: start: 20150924, end: 20150924
  28. LOPERAMIDE [Concomitant]
     Active Substance: LOPERAMIDE
     Indication: PRODUCT USED FOR UNKNOWN INDICATION
     Dosage: 2 MG
     Route: 048
     Dates: start: 20150922, end: 20160122
  29. DOMPERIDONE [Concomitant]
     Active Substance: DOMPERIDONE
  30. OMEPRAZOLE. [Concomitant]
     Active Substance: OMEPRAZOLE

REACTIONS (7)
  - Neuropathy peripheral [Recovered/Resolved]
  - Hot flush [Recovered/Resolved]
  - Cough [Recovered/Resolved]
  - Aphonia [Recovered/Resolved]
  - Hyperglycaemia [Recovered/Resolved]
  - Upper respiratory tract infection [Recovered/Resolved]
  - Constipation [Recovered/Resolved]

NARRATIVE: CASE EVENT DATE: 201603
